FAERS Safety Report 16455271 (Version 5)
Quarter: 2019Q4

REPORT INFORMATION
  Report Type: Spontaneous
  Country: US (occurrence: US)
  Receive Date: 20190619
  Receipt Date: 20191211
  Transmission Date: 20200122
  Serious: No
  Sender: FDA-Public Use
  Company Number: US-ARRAY-2019-05713

PATIENT

DRUGS (5)
  1. BRAFTOVI [Suspect]
     Active Substance: ENCORAFENIB
     Dosage: 300 MG, QD
     Route: 048
     Dates: start: 20190116
  2. MEKTOVI [Suspect]
     Active Substance: BINIMETINIB
     Indication: METASTASIS
     Dosage: 30 MG, BID
     Route: 048
     Dates: start: 20190106
  3. MEKTOVI [Suspect]
     Active Substance: BINIMETINIB
     Dosage: 30 MG, BID
     Route: 048
     Dates: start: 20190116
  4. BOOST [Concomitant]
     Active Substance: DIETARY SUPPLEMENT
     Indication: PRODUCT USED FOR UNKNOWN INDICATION
  5. BRAFTOVI [Suspect]
     Active Substance: ENCORAFENIB
     Indication: METASTASIS
     Dosage: 300 MG, QD
     Route: 048
     Dates: start: 20190106

REACTIONS (10)
  - Pain [Unknown]
  - Product dose omission [Unknown]
  - Tinnitus [Unknown]
  - Paraesthesia [Unknown]
  - Fatigue [Not Recovered/Not Resolved]
  - Off label use [Unknown]
  - Nausea [Not Recovered/Not Resolved]
  - Malaise [Unknown]
  - Hypoaesthesia [Unknown]
  - Stress [Unknown]

NARRATIVE: CASE EVENT DATE: 20190116
